FAERS Safety Report 6951869-8 (Version None)
Quarter: 2010Q3

REPORT INFORMATION
  Report Type: 
  Country: None (occurrence: None)
  Receive Date: 20100829
  Receipt Date: 20100413
  Transmission Date: 20110219
  Serious: No
  Sender: FDA-Public Use
  Company Number: US-ABBOTT-10P-163-0639289-00

PATIENT
  Age: 50 Year
  Sex: Male
  Weight: 106.69 kg

DRUGS (8)
  1. NIASPAN [Suspect]
     Indication: BLOOD CHOLESTEROL INCREASED
     Dosage: AT HOUR OF SLEEP
     Route: 048
     Dates: start: 20090401, end: 20090701
  2. NIASPAN [Suspect]
     Dosage: AT HOUR OF SLEEP
     Route: 048
     Dates: start: 20090101, end: 20090701
  3. NIASPAN [Suspect]
     Dosage: AT HOUR OF SLEEP
     Route: 048
     Dates: start: 20100101
  4. TRILIPIX DR [Concomitant]
     Indication: PRODUCT USED FOR UNKNOWN INDICATION
     Route: 048
  5. LIPITOR [Concomitant]
     Indication: PRODUCT USED FOR UNKNOWN INDICATION
     Route: 048
  6. ASPIRIN [Concomitant]
     Indication: PRODUCT USED FOR UNKNOWN INDICATION
     Dosage: DAILY WITH NIASPAN
     Route: 048
  7. FOLIC ACID [Concomitant]
     Indication: PRODUCT USED FOR UNKNOWN INDICATION
     Route: 048
  8. VITAMIN B-12 [Concomitant]
     Indication: PRODUCT USED FOR UNKNOWN INDICATION
     Route: 048

REACTIONS (1)
  - PRURITUS [None]
